FAERS Safety Report 18845076 (Version 1)
Quarter: 2021Q1

REPORT INFORMATION
  Report Type: Report from Study
  Country: JP (occurrence: JP)
  Receive Date: 20210204
  Receipt Date: 20210204
  Transmission Date: 20210419
  Serious: Yes (Hospitalization)
  Sender: FDA-Public Use
  Company Number: JP-TEVA-2021-JP-1877108

PATIENT
  Age: 5 Year
  Sex: Male

DRUGS (6)
  1. URSODEOXYCHOLIC ACID [Concomitant]
     Active Substance: URSODIOL
     Indication: PROPHYLAXIS
     Route: 048
  2. CBDCA [Suspect]
     Active Substance: CARBOPLATIN
     Indication: NEUROBLASTOMA
     Dosage: AS A PART OF MEC REGIMEN
     Route: 065
  3. MELPHALAN. [Suspect]
     Active Substance: MELPHALAN
     Indication: NEUROBLASTOMA
     Route: 065
  4. BUSULFAN. [Suspect]
     Active Substance: BUSULFAN
     Indication: NEUROBLASTOMA
     Dosage: 16 TIMES EVERY 6 HOURS AS A PART OF BUMEL REGIMEN
     Route: 042
  5. VP?16 [Suspect]
     Active Substance: ETOPOSIDE
     Indication: NEUROBLASTOMA
     Dosage: AS A PART OF MEC REGIMEN
     Route: 065
  6. DALTEPARIN [Concomitant]
     Active Substance: DALTEPARIN
     Indication: PROPHYLAXIS
     Route: 050

REACTIONS (5)
  - Short stature [Unknown]
  - Gastrointestinal mucosal disorder [Recovered/Resolved]
  - Hypoacusis [Unknown]
  - Gastrointestinal injury [Recovered/Resolved]
  - Acute kidney injury [Recovered/Resolved]
